FAERS Safety Report 15455762 (Version 1)
Quarter: 2018Q4

REPORT INFORMATION
  Report Type: Report from Study
  Country: AR (occurrence: AR)
  Receive Date: 20181002
  Receipt Date: 20181002
  Transmission Date: 20190204
  Serious: Yes (Life-Threatening)
  Sender: FDA-Public Use
  Company Number: AR-SA-2018SA118668

PATIENT
  Age: 64 Year
  Sex: Female
  Weight: 68.7 kg

DRUGS (10)
  1. NEBIVOLOL. [Concomitant]
     Active Substance: NEBIVOLOL
     Indication: HYPERTENSION
     Dosage: 5 MG,QD
     Route: 048
     Dates: start: 201711
  2. ALGLUCOSIDASE ALFA [Suspect]
     Active Substance: ALGLUCOSIDASE ALFA
     Dosage: 7 MG/KG/H
     Route: 041
     Dates: start: 20180326, end: 20180326
  3. ALGLUCOSIDASE ALFA [Suspect]
     Active Substance: ALGLUCOSIDASE ALFA
     Dosage: UNK UNK,UNK
     Route: 041
     Dates: start: 20180423, end: 20180423
  4. ACETYLSALICYLIC ACID [Concomitant]
     Active Substance: ASPIRIN
     Indication: HYPERTENSION
     Dosage: 325 MG,QD
     Route: 048
     Dates: start: 201711
  5. ALGLUCOSIDASE ALFA [Suspect]
     Active Substance: ALGLUCOSIDASE ALFA
     Indication: GLYCOGEN STORAGE DISEASE TYPE II
     Dosage: 1 MG/KG/H
     Route: 041
     Dates: start: 20180326, end: 20180326
  6. ALGLUCOSIDASE ALFA [Suspect]
     Active Substance: ALGLUCOSIDASE ALFA
     Dosage: 5 MG/KG/H
     Route: 041
     Dates: start: 20180326, end: 20180326
  7. ALGLUCOSIDASE ALFA [Suspect]
     Active Substance: ALGLUCOSIDASE ALFA
     Dosage: UNK UNK,UNK
     Route: 041
     Dates: start: 20180423, end: 20180423
  8. ALGLUCOSIDASE ALFA [Suspect]
     Active Substance: ALGLUCOSIDASE ALFA
     Dosage: 3 MG/KG/H
     Route: 041
     Dates: start: 20180326, end: 20180326
  9. FLUTICASONE. [Concomitant]
     Active Substance: FLUTICASONE
     Indication: ASTHMA
     Dosage: UNK UNK,UNK
     Route: 065
     Dates: start: 2008
  10. SALBUTAMOL [Concomitant]
     Active Substance: ALBUTEROL
     Dosage: UNK UNK,UNK
     Route: 065
     Dates: start: 2001

REACTIONS (4)
  - Confusional state [Recovered/Resolved]
  - Rash [Recovered/Resolved]
  - Dyspnoea [Recovered/Resolved]
  - Oedema peripheral [Recovered/Resolved]

NARRATIVE: CASE EVENT DATE: 20180423
